FAERS Safety Report 8989366 (Version 3)
Quarter: 2013Q2

REPORT INFORMATION
  Report Type: Spontaneous
  Country: US (occurrence: US)
  Receive Date: 20121228
  Receipt Date: 20130606
  Transmission Date: 20140414
  Serious: Yes (Hospitalization)
  Sender: FDA-Public Use
  Company Number: US-BAYER-2012-135258

PATIENT
  Age: 22 Year
  Sex: Female
  Weight: 56.69 kg

DRUGS (40)
  1. YAZ [Suspect]
     Indication: CONTRACEPTION
     Dosage: UNK
     Dates: start: 2007, end: 2008
  2. YAZ [Suspect]
     Indication: PREMENSTRUAL SYNDROME
  3. CEFDINIR [Concomitant]
     Dosage: UNK
     Dates: start: 20080208
  4. MEPERIDINE [Concomitant]
     Dosage: UNK
     Dates: start: 20080216
  5. VALTREX [Concomitant]
     Dosage: UNK
     Dates: start: 20080226
  6. APAP [Concomitant]
     Dosage: UNK
     Dates: start: 20080226
  7. APAP [Concomitant]
     Dosage: UNK
     Dates: start: 20080424
  8. HYDROCODONE [Concomitant]
     Dosage: UNK
     Dates: start: 20080226
  9. HYDROCODONE [Concomitant]
     Dosage: UNK
     Dates: start: 20080424
  10. KETOROLAC [Concomitant]
     Dosage: UNK
     Dates: start: 20080226
  11. KETOROLAC [Concomitant]
     Dosage: UNK
     Dates: start: 20080421
  12. FLUCONAZOLE [Concomitant]
     Dosage: UNK
     Dates: start: 20080306
  13. FLUCONAZOLE [Concomitant]
     Dosage: UNK
     Dates: start: 20080424
  14. PREDNISONE [Concomitant]
     Dosage: UNK
     Dates: start: 20080306
  15. PREDNISONE [Concomitant]
     Dosage: UNK
     Dates: start: 20080315
  16. PREDNISONE [Concomitant]
     Dosage: UNK
     Dates: start: 20080328
  17. PROMETHAZINE [Concomitant]
     Dosage: UNK
     Dates: start: 20080306
  18. ENDOCET [Concomitant]
     Dosage: UNK
     Dates: start: 20080315
  19. SMZ-TMP [Concomitant]
     Dosage: UNK
     Dates: start: 20080306
  20. FAMOTIDINE [Concomitant]
     Dosage: UNK
     Dates: start: 20080315
  21. CYCLOBENZAPRINE [Concomitant]
     Dosage: UNK
     Dates: start: 20080421
  22. ZYVOX [Concomitant]
     Dosage: UNK
     Dates: start: 20080424
  23. HYDROXYZINE [Concomitant]
     Dosage: UNK
     Dates: start: 1998, end: 2012
  24. CIPROFLOXACIN [Concomitant]
     Dosage: UNK
     Dates: start: 1998, end: 2012
  25. FOLITAB [FOLIC ACID] [Concomitant]
     Dosage: UNK
     Dates: start: 1998, end: 2012
  26. IBUPROFEN [Concomitant]
     Dosage: UNK
     Dates: start: 1998, end: 2012
  27. AMOXICILLIN [Concomitant]
     Dosage: UNK
     Dates: start: 1998
  28. ANUCORT-HC [Concomitant]
     Dosage: UNK
     Dates: start: 1998
  29. PHENAZOPYRIDINE [Concomitant]
     Dosage: UNK
     Dates: start: 1998, end: 2012
  30. LYNESTRENOL [Concomitant]
     Dosage: UNK
     Dates: start: 1998
  31. DURAPHEN DM [Concomitant]
     Dosage: UNK
     Dates: start: 1998, end: 2012
  32. PREVPAC [Concomitant]
     Dosage: UNK
     Dates: start: 1998, end: 2012
  33. GUAIFENESIN [Concomitant]
     Dosage: UNK
     Dates: start: 1998, end: 2012
  34. LEVAQUIN [Concomitant]
     Dosage: UNK
     Dates: start: 1998, end: 2012
  35. AMBIEN [Concomitant]
     Dosage: UNK
     Dates: start: 1998, end: 2012
  36. CLARITIN [Concomitant]
     Dosage: UNK
     Dates: start: 1998, end: 2012
  37. TOBRADEX [Concomitant]
     Dosage: UNK
     Dates: start: 1998, end: 2012
  38. MACROBID [Concomitant]
     Dosage: UNK
     Dates: start: 1998, end: 2012
  39. TRI-VENT DM [Concomitant]
     Dosage: UNK
     Dates: start: 1998, end: 2012
  40. PATANOL [Concomitant]
     Dosage: UNK
     Dates: start: 1998, end: 2012

REACTIONS (8)
  - Pulmonary embolism [None]
  - Deep vein thrombosis [None]
  - Pain [None]
  - Injury [None]
  - General physical health deterioration [None]
  - Anxiety [None]
  - Emotional distress [None]
  - Pain [None]
